FAERS Safety Report 15651003 (Version 1)
Quarter: 2018Q4

REPORT INFORMATION
  Report Type: Spontaneous
  Country: US (occurrence: US)
  Receive Date: 20181123
  Receipt Date: 20181123
  Transmission Date: 20190205
  Serious: Yes (Hospitalization, Other)
  Sender: FDA-Public Use
  Company Number: US-ASTRAZENECA-2018SF53559

PATIENT
  Age: 9637 Day
  Sex: Female
  Weight: 90.7 kg

DRUGS (1)
  1. QUETIAPINE FUMARATE. [Suspect]
     Active Substance: QUETIAPINE FUMARATE
     Indication: DEPRESSION
     Route: 048
     Dates: start: 20181107, end: 20181114

REACTIONS (9)
  - Seizure [Unknown]
  - Dyspnoea [Unknown]
  - Paraesthesia [Unknown]
  - Dysphagia [Unknown]
  - Dizziness [Unknown]
  - Somnolence [Unknown]
  - Dysstasia [Unknown]
  - Gait disturbance [Unknown]
  - Orthostatic hypotension [Unknown]

NARRATIVE: CASE EVENT DATE: 20181110
